FAERS Safety Report 12368065 (Version 1)
Quarter: 2016Q2

REPORT INFORMATION
  Report Type: Spontaneous
  Country: US (occurrence: US)
  Receive Date: 20160513
  Receipt Date: 20160513
  Transmission Date: 20160815
  Serious: No
  Sender: FDA-Public Use
  Company Number: US-JNJFOC-20160400776

PATIENT
  Age: 87 Year
  Sex: Female
  Weight: 80.74 kg

DRUGS (2)
  1. WOMENS ROGAINE UNSCENTED [Suspect]
     Active Substance: MINOXIDIL
     Indication: ALOPECIA
     Route: 061
     Dates: end: 20160331
  2. WOMENS ROGAINE UNSCENTED [Suspect]
     Active Substance: MINOXIDIL
     Route: 061

REACTIONS (5)
  - Product lot number issue [Unknown]
  - Product closure removal difficult [Unknown]
  - Drug administration error [Unknown]
  - Expired product administered [Unknown]
  - Product formulation issue [Unknown]
